FAERS Safety Report 22388145 (Version 1)
Quarter: 2023Q2

REPORT INFORMATION
  Report Type: Spontaneous
  Country: US (occurrence: US)
  Receive Date: 20230531
  Receipt Date: 20230531
  Transmission Date: 20230722
  Serious: No
  Sender: FDA-Public Use
  Company Number: US-SA-SAC20230530000923

PATIENT
  Sex: Female

DRUGS (1)
  1. REZUROCK [Suspect]
     Active Substance: BELUMOSUDIL
     Dosage: UNK
     Route: 065
     Dates: start: 20221026

REACTIONS (7)
  - Swelling face [Recovered/Resolved]
  - Impaired healing [Unknown]
  - Bone pain [Unknown]
  - Cough [Unknown]
  - Nausea [Unknown]
  - Infection [Unknown]
  - Contusion [Unknown]
